FAERS Safety Report 9330914 (Version 2)
Quarter: 2013Q3

REPORT INFORMATION
  Report Type: Spontaneous
  Country: JP (occurrence: JP)
  Receive Date: 20130605
  Receipt Date: 20130703
  Transmission Date: 20140515
  Serious: Yes (Disabling)
  Sender: FDA-Public Use
  Company Number: JP-PFIZER INC-2013168334

PATIENT
  Age: 52 Year
  Sex: Female
  Weight: 46 kg

DRUGS (2)
  1. LIPITOR [Suspect]
     Dosage: 10 MG, 1X/DAY
     Route: 048
     Dates: start: 20130410, end: 2013
  2. BAYASPIRIN [Concomitant]
     Dosage: UNK
     Route: 048

REACTIONS (2)
  - Gingival swelling [Recovering/Resolving]
  - Paraesthesia oral [Recovering/Resolving]
